FAERS Safety Report 7349696-5 (Version None)
Quarter: 2011Q1

REPORT INFORMATION
  Report Type: 
  Country: None (occurrence: None)
  Receive Date: 20110302
  Receipt Date: 20110218
  Transmission Date: 20110831
  Serious: Yes (Hospitalization)
  Sender: FDA-Public Use
  Company Number: 2011AP000296

PATIENT
  Age: 24 Year
  Sex: Male

DRUGS (9)
  1. FLUOXETINE [Suspect]
     Indication: ANXIETY
     Dosage: 20 MG;PO
     Route: 048
     Dates: start: 20101231, end: 20110127
  2. FLUOXETINE [Suspect]
     Indication: OBSESSIVE-COMPULSIVE DISORDER
     Dosage: 20 MG;PO
     Route: 048
     Dates: start: 20101231, end: 20110127
  3. CITALOPRAM HYDROBROMIDE [Suspect]
     Indication: OBSESSIVE-COMPULSIVE DISORDER
     Dosage: 20 MG;PO
     Route: 048
     Dates: start: 20110128, end: 20110208
  4. CITALOPRAM HYDROBROMIDE [Suspect]
     Indication: ANXIETY
     Dosage: 20 MG;PO
     Route: 048
     Dates: start: 20110128, end: 20110208
  5. OMEPRAZOLE [Suspect]
     Indication: PRODUCT USED FOR UNKNOWN INDICATION
     Dosage: 40 MG;QD
  6. AMOXICILLIN [Concomitant]
  7. DICLOFENAC (DICLOFENAC) [Concomitant]
  8. FLUTICASONE PROPIONATE W/SALMETEROL (FLUTICASONE W/SALMETEREOL) [Concomitant]
  9. ATROPINE [Concomitant]

REACTIONS (14)
  - MUSCLE RIGIDITY [None]
  - SEROTONIN SYNDROME [None]
  - MALAISE [None]
  - PYREXIA [None]
  - DRUG INTERACTION [None]
  - ANTIDEPRESSANT DRUG LEVEL INCREASED [None]
  - TREMOR [None]
  - BLOOD PRESSURE DIASTOLIC DECREASED [None]
  - FEELING OF BODY TEMPERATURE CHANGE [None]
  - HEADACHE [None]
  - HYPERHIDROSIS [None]
  - VOMITING [None]
  - CHILLS [None]
  - MUSCLE TWITCHING [None]
